FAERS Safety Report 17529812 (Version 3)
Quarter: 2021Q1

REPORT INFORMATION
  Report Type: Spontaneous
  Country: IN (occurrence: IN)
  Receive Date: 20200311
  Receipt Date: 20210113
  Transmission Date: 20210419
  Serious: Yes (Other)
  Sender: FDA-Public Use
  Company Number: IN-PFIZER INC-2019258754

PATIENT
  Age: 58 Year
  Sex: Male
  Weight: 76 kg

DRUGS (1)
  1. SUTENT [Suspect]
     Active Substance: SUNITINIB MALATE
     Indication: METASTATIC RENAL CELL CARCINOMA
     Dosage: 50 MG, CYCLIC (ONCE DAILY 2WEEKS?1WEEK OFF(MAY BE TAKEN WITH OR WITHOUT FOOD))
     Route: 048
     Dates: start: 20190615

REACTIONS (4)
  - Epididymal cyst [Unknown]
  - Haemoptysis [Unknown]
  - Pulmonary cavitation [Unknown]
  - Varicocele [Unknown]
